FAERS Safety Report 5823833-3 (Version None)
Quarter: 2008Q3

REPORT INFORMATION
  Report Type: 
  Country: None (occurrence: None)
  Receive Date: 20080725
  Receipt Date: 20080717
  Transmission Date: 20090109
  Serious: Yes (Hospitalization)
  Sender: FDA-Public Use
  Company Number: US-ABBOTT-08P-163-0450572-00

PATIENT
  Sex: Female
  Weight: 83.99 kg

DRUGS (5)
  1. HUMIRA [Suspect]
     Indication: RHEUMATOID ARTHRITIS
     Route: 058
     Dates: start: 20080416, end: 20080507
  2. HUMIRA [Suspect]
     Route: 058
     Dates: start: 20080718
  3. AVANTA [Concomitant]
     Indication: DIABETES MELLITUS
  4. OMEPRAZOLE MAGNESIUM [Concomitant]
     Indication: DRUG USE FOR UNKNOWN INDICATION
  5. UNKNOWN PAIN MEDICATIONS [Concomitant]
     Indication: DRUG USE FOR UNKNOWN INDICATION

REACTIONS (8)
  - ANAEMIA [None]
  - ASTHENIA [None]
  - BLOOD COUNT ABNORMAL [None]
  - EAR INFECTION [None]
  - EAR PAIN [None]
  - OROPHARYNGEAL PAIN [None]
  - PYREXIA [None]
  - URINARY TRACT INFECTION [None]
